FAERS Safety Report 5506868-X (Version None)
Quarter: 2007Q4

REPORT INFORMATION
  Report Type: 
  Country: None (occurrence: None)
  Receive Date: 20071105
  Receipt Date: 20071025
  Transmission Date: 20080405
  Serious: Yes (Hospitalization)
  Sender: FDA-Public Use
  Company Number: US-SHR-US-2007-031480

PATIENT
  Age: 38 Year
  Sex: Female
  Weight: 72.6 kg

DRUGS (7)
  1. BETASERON [Suspect]
     Indication: RELAPSING-REMITTING MULTIPLE SCLEROSIS
     Dosage: 8 MIU, EVERY 2D
     Route: 058
     Dates: start: 20070414
  2. BETASERON [Suspect]
     Dosage: 8 MIU, EVERY 2D
     Route: 058
     Dates: start: 20070815
  3. BACLOFEN [Concomitant]
     Dosage: 40 MG, 3X/DAY
  4. NEURONTIN [Concomitant]
     Dosage: 800 MG, 4X/DAY
  5. ZANAFLEX [Concomitant]
     Dosage: 8 MG, 1X/DAY
  6. TYLENOL (CAPLET) [Concomitant]
     Dosage: UNK, AS REQ'D
  7. ADVIL [Concomitant]
     Dosage: UNK, AS REQ'D

REACTIONS (3)
  - ALOPECIA [None]
  - GALLBLADDER DISORDER [None]
  - MULTIPLE SCLEROSIS [None]
